FAERS Safety Report 25736910 (Version 1)
Quarter: 2025Q3

REPORT INFORMATION
  Report Type: Spontaneous
  Country: US (occurrence: US)
  Receive Date: 20250828
  Receipt Date: 20250828
  Transmission Date: 20251020
  Serious: Yes (Other)
  Sender: PFIZER
  Company Number: US-PFIZER INC-202500171470

PATIENT
  Age: 61 Year
  Sex: Female

DRUGS (1)
  1. TUKYSA [Suspect]
     Active Substance: TUCATINIB
     Dosage: 150 MG TAKE 2 TABLETS BY MOUTH EVERY 12 HOURS
     Route: 048

REACTIONS (2)
  - Metastases to lung [Not Recovered/Not Resolved]
  - Metastases to bone [Not Recovered/Not Resolved]
